FAERS Safety Report 18199442 (Version 1)
Quarter: 2020Q3

REPORT INFORMATION
  Report Type: Spontaneous
  Country: GT (occurrence: GT)
  Receive Date: 20200826
  Receipt Date: 20200826
  Transmission Date: 20201103
  Serious: Yes (Other)
  Sender: FDA-Public Use
  Company Number: NVSC2020GT235577

PATIENT
  Sex: Female

DRUGS (1)
  1. GLIVEC [Suspect]
     Active Substance: IMATINIB MESYLATE
     Indication: CHRONIC MYELOID LEUKAEMIA
     Dosage: UNK (1 OF 400MG) (MORE THAN 9 MONTHS AGO)
     Route: 065

REACTIONS (3)
  - Abdominal pain upper [Unknown]
  - Uterine infection [Unknown]
  - Kidney infection [Unknown]
